FAERS Safety Report 10057136 (Version 1)
Quarter: 2014Q2

REPORT INFORMATION
  Report Type: Spontaneous
  Country: AU (occurrence: AU)
  Receive Date: 20140403
  Receipt Date: 20140403
  Transmission Date: 20141212
  Serious: Yes (Disabling)
  Sender: FDA-Public Use
  Company Number: AU-ASTRAZENECA-2014SE21375

PATIENT
  Age: 62 Year
  Sex: Female

DRUGS (1)
  1. CRESTOR [Suspect]
     Dosage: UNSPECIFIED DOSE DAILY
     Route: 048
     Dates: end: 20130828

REACTIONS (3)
  - Aphasia [Recovered/Resolved]
  - Muscle spasms [Recovered/Resolved]
  - Type 2 diabetes mellitus [Recovered/Resolved]
